FAERS Safety Report 4947106-6 (Version None)
Quarter: 2006Q1

REPORT INFORMATION
  Report Type: 
  Country: None (occurrence: None)
  Receive Date: 20060314
  Receipt Date: 20060221
  Transmission Date: 20060701
  Serious: Yes (Disabling, Other)
  Sender: FDA-Public Use
  Company Number: US200602004325

PATIENT
  Age: 70 Year
  Sex: Female

DRUGS (1)
  1. HUMALOG [Suspect]
     Indication: DIABETES MELLITUS INSULIN-DEPENDENT

REACTIONS (4)
  - BLINDNESS UNILATERAL [None]
  - EYE EXCISION [None]
  - EYE HAEMORRHAGE [None]
  - VITREOUS HAEMORRHAGE [None]
